FAERS Safety Report 12788461 (Version 2)
Quarter: 2016Q4

REPORT INFORMATION
  Report Type: Spontaneous
  Country: NZ (occurrence: NZ)
  Receive Date: 20160928
  Receipt Date: 20161013
  Transmission Date: 20170207
  Serious: Yes (Other)
  Sender: FDA-Public Use
  Company Number: NZ-PFIZER INC-2016438468

PATIENT
  Age: 56 Year
  Sex: Male

DRUGS (1)
  1. SUNITINIB MALATE. [Suspect]
     Active Substance: SUNITINIB MALATE
     Indication: RENAL CELL CARCINOMA
     Dosage: (4/2 SCHEDULE) 50 MG/DAY
     Dates: start: 20110808

REACTIONS (2)
  - Vena cava thrombosis [Unknown]
  - Pelvic venous thrombosis [Unknown]
